FAERS Safety Report 13696366 (Version 2)
Quarter: 2017Q3

REPORT INFORMATION
  Report Type: Spontaneous
  Country: FI (occurrence: FI)
  Receive Date: 20170628
  Receipt Date: 20170719
  Transmission Date: 20171127
  Serious: Yes (Hospitalization, Other)
  Sender: FDA-Public Use
  Company Number: FI-BRISTOL-MYERS SQUIBB COMPANY-BMS-2017-054429

PATIENT
  Age: 69 Year
  Sex: Male

DRUGS (5)
  1. SIMVASTATIN ORION [Concomitant]
     Active Substance: SIMVASTATIN
     Indication: HYPERCHOLESTEROLAEMIA
     Dosage: 20 MG, QD
     Route: 048
  2. ELIQUIS [Suspect]
     Active Substance: APIXABAN
     Indication: CEREBROVASCULAR ACCIDENT PROPHYLAXIS
     Dosage: 5 MG, BID
     Route: 048
  3. AMLODIPIN ORION                    /00972402/ [Concomitant]
     Indication: BLOOD PRESSURE ABNORMAL
     Dosage: 5 MG, QD
     Route: 048
  4. CANDEMOX                           /01349502/ [Concomitant]
     Indication: BLOOD PRESSURE ABNORMAL
     Dosage: 8 MG, QD
     Route: 048
  5. ELIQUIS [Suspect]
     Active Substance: APIXABAN
     Indication: MITRAL VALVE INCOMPETENCE
     Route: 065

REACTIONS (3)
  - Therapeutic procedure [Unknown]
  - Transurethral prostatectomy [Unknown]
  - Bladder tamponade [Not Recovered/Not Resolved]

NARRATIVE: CASE EVENT DATE: 20170531
